FAERS Safety Report 20090119 (Version 3)
Quarter: 2025Q3

REPORT INFORMATION
  Report Type: Spontaneous
  Country: BR (occurrence: BR)
  Receive Date: 20211119
  Receipt Date: 20250708
  Transmission Date: 20251021
  Serious: Yes (Hospitalization)
  Sender: BIOGEN
  Company Number: BR-BIOGEN-2018BI00670183

PATIENT
  Age: 29 Year
  Sex: Female
  Weight: 55 kg

DRUGS (10)
  1. TECFIDERA [Suspect]
     Active Substance: DIMETHYL FUMARATE
     Indication: Multiple sclerosis
     Route: 050
     Dates: start: 20180308, end: 20200909
  2. TECFIDERA [Suspect]
     Active Substance: DIMETHYL FUMARATE
     Route: 050
     Dates: start: 20200910
  3. TECFIDERA [Suspect]
     Active Substance: DIMETHYL FUMARATE
     Dosage: 240 UNIT OF MEASUREMENT NOT PROVIDED
     Route: 050
     Dates: start: 20180308, end: 20210915
  4. TECFIDERA [Suspect]
     Active Substance: DIMETHYL FUMARATE
     Dosage: DOSE 250 UNKNOWN?1 ^TABLET^ IN THE MORNING (AS REPORTED) AND UNIT OF MEASUREMENT NOT INFORMED.
     Route: 050
     Dates: start: 2019, end: 2021
  5. ASTRAZENECA COVID-19 VACCINE [Suspect]
     Active Substance: AZD-1222
     Indication: COVID-19 prophylaxis
     Route: 050
  6. HUMAN PAPILLOMAVIRUS QUADRIVALENT (TYPES 6, 11, 16, AND 18) VACCINE, R [Suspect]
     Active Substance: HUMAN PAPILLOMAVIRUS QUADRIVALENT (TYPES 6, 11, 16, AND 18) VACCINE, RECOMBINANT
     Indication: Product used for unknown indication
     Route: 050
  7. RUBELLA VIRUS VACCINE LIVE NOS [Suspect]
     Active Substance: RUBELLA VIRUS STRAIN WISTAR RA 27/3 LIVE ANTIGEN
     Indication: Product used for unknown indication
     Route: 050
  8. TWINRIX [Suspect]
     Active Substance: HEPATITIS A VIRUS STRAIN HM175 ANTIGEN (FORMALDEHYDE INACTIVATED)\HEPATITIS B VIRUS SUBTYPE ADW2 HBS
     Indication: Product used for unknown indication
     Route: 050
  9. PNEUMOCOCCAL VACCINE NOS [Suspect]
     Active Substance: PNEUMOCOCCAL VACCINE
     Indication: Product used for unknown indication
     Route: 050
  10. DROSPIRENONE\ETHINYL ESTRADIOL [Concomitant]
     Active Substance: DROSPIRENONE\ETHINYL ESTRADIOL
     Indication: Product used for unknown indication
     Route: 050

REACTIONS (12)
  - Multiple sclerosis relapse [Recovered/Resolved]
  - Product dose omission issue [Unknown]
  - Decreased immune responsiveness [Not Recovered/Not Resolved]
  - Drug interaction [Unknown]
  - Skin burning sensation [Unknown]
  - Prescribed underdose [Recovered/Resolved]
  - Urticaria [Not Recovered/Not Resolved]
  - Gastrointestinal disorder [Recovered/Resolved]
  - Flushing [Recovered/Resolved]
  - Dyspepsia [Recovered/Resolved]
  - Abdominal pain upper [Recovered/Resolved]
  - Off label use [Unknown]

NARRATIVE: CASE EVENT DATE: 20180308
